FAERS Safety Report 4951294-5 (Version None)
Quarter: 2006Q1

REPORT INFORMATION
  Report Type: 
  Country: None (occurrence: None)
  Receive Date: 20060317
  Receipt Date: 20060303
  Transmission Date: 20060701
  Serious: Yes (Hospitalization, Other)
  Sender: FDA-Public Use
  Company Number: HQWYE215408MAR06

PATIENT
  Age: 61 Year
  Sex: Male

DRUGS (8)
  1. MYLOTARG [Suspect]
     Indication: ACUTE MYELOID LEUKAEMIA
     Dosage: 18 MG 1X PER 1 DAY, INTRAVENOUS
     Route: 042
     Dates: start: 20051110, end: 20051110
  2. LEVAQUIN [Concomitant]
  3. VORICONAZOLE [Concomitant]
  4. FAMVIR [Concomitant]
  5. LOPRESSOR [Concomitant]
  6. ATIVAN [Concomitant]
  7. CEFTRIAXONE SODIUM [Concomitant]
  8. VANCOMYCIN HYDROCHLORIDE [Concomitant]

REACTIONS (3)
  - ARRHYTHMIA SUPRAVENTRICULAR [None]
  - BLOOD PRESSURE DIASTOLIC INCREASED [None]
  - RESPIRATORY RATE INCREASED [None]
